FAERS Safety Report 24166030 (Version 1)
Quarter: 2024Q3

REPORT INFORMATION
  Report Type: Report from Study
  Country: US (occurrence: None)
  Receive Date: 20240802
  Receipt Date: 20240802
  Transmission Date: 20241016
  Serious: Yes (Hospitalization)
  Sender: ASTRAZENECA
  Company Number: 2021A824657

PATIENT
  Sex: Female
  Weight: 48.1 kg

DRUGS (1)
  1. FASENRA [Suspect]
     Active Substance: BENRALIZUMAB
     Route: 058

REACTIONS (4)
  - Myocardial infarction [Unknown]
  - Kidney infection [Unknown]
  - Haematological infection [Unknown]
  - Dyspnoea [Unknown]
